FAERS Safety Report 13196883 (Version 1)
Quarter: 2017Q1

REPORT INFORMATION
  Report Type: Spontaneous
  Country: US (occurrence: US)
  Receive Date: 20170208
  Receipt Date: 20170208
  Transmission Date: 20170428
  Serious: No
  Sender: FDA-Public Use
  Company Number: US-AMGEN-USASP2016116469

PATIENT

DRUGS (16)
  1. ADRIAMYCIN [Suspect]
     Active Substance: DOXORUBICIN HYDROCHLORIDE
     Indication: BREAST CANCER STAGE III
  2. CYCLOPHOSPHAMIDE. [Suspect]
     Active Substance: CYCLOPHOSPHAMIDE
     Indication: BREAST CANCER STAGE III
  3. CYCLOPHOSPHAMIDE. [Suspect]
     Active Substance: CYCLOPHOSPHAMIDE
     Indication: HUMAN EPIDERMAL GROWTH FACTOR RECEPTOR NEGATIVE
  4. NEULASTA [Suspect]
     Active Substance: PEGFILGRASTIM
     Indication: PRODUCT USED FOR UNKNOWN INDICATION
     Dosage: UNK
     Route: 065
  5. ADRIAMYCIN [Suspect]
     Active Substance: DOXORUBICIN HYDROCHLORIDE
     Indication: OESTROGEN RECEPTOR ASSAY NEGATIVE
  6. TAXOL [Suspect]
     Active Substance: PACLITAXEL
     Indication: INVASIVE BREAST CARCINOMA
     Dosage: UNK
     Route: 065
     Dates: start: 20160427
  7. TAXOL [Suspect]
     Active Substance: PACLITAXEL
     Indication: HUMAN EPIDERMAL GROWTH FACTOR RECEPTOR NEGATIVE
  8. ADRIAMYCIN [Suspect]
     Active Substance: DOXORUBICIN HYDROCHLORIDE
     Indication: PROGESTERONE RECEPTOR ASSAY NEGATIVE
  9. CYCLOPHOSPHAMIDE. [Suspect]
     Active Substance: CYCLOPHOSPHAMIDE
     Indication: PROGESTERONE RECEPTOR ASSAY NEGATIVE
  10. TAXOL [Suspect]
     Active Substance: PACLITAXEL
     Indication: OESTROGEN RECEPTOR ASSAY NEGATIVE
  11. ADRIAMYCIN [Suspect]
     Active Substance: DOXORUBICIN HYDROCHLORIDE
     Indication: INVASIVE BREAST CARCINOMA
     Dosage: UNK
     Route: 065
     Dates: start: 20160427
  12. CYCLOPHOSPHAMIDE. [Suspect]
     Active Substance: CYCLOPHOSPHAMIDE
     Indication: INVASIVE BREAST CARCINOMA
     Dosage: UNK
     Route: 065
     Dates: start: 20160427
  13. TAXOL [Suspect]
     Active Substance: PACLITAXEL
     Indication: PROGESTERONE RECEPTOR ASSAY NEGATIVE
  14. TAXOL [Suspect]
     Active Substance: PACLITAXEL
     Indication: BREAST CANCER STAGE III
  15. ADRIAMYCIN [Suspect]
     Active Substance: DOXORUBICIN HYDROCHLORIDE
     Indication: HUMAN EPIDERMAL GROWTH FACTOR RECEPTOR NEGATIVE
  16. CYCLOPHOSPHAMIDE. [Suspect]
     Active Substance: CYCLOPHOSPHAMIDE
     Indication: OESTROGEN RECEPTOR ASSAY NEGATIVE

REACTIONS (5)
  - Nasopharyngitis [Unknown]
  - Nausea [Recovered/Resolved]
  - Unevaluable event [Unknown]
  - Bone pain [Recovered/Resolved]
  - Emotional disorder [Unknown]

NARRATIVE: CASE EVENT DATE: 201607
